FAERS Safety Report 8426062-2 (Version None)
Quarter: 2012Q2

REPORT INFORMATION
  Report Type: 
  Country: None (occurrence: None)
  Receive Date: 20120611
  Receipt Date: 20120529
  Transmission Date: 20120825
  Serious: Yes (Hospitalization, Other)
  Sender: FDA-Public Use
  Company Number: US-ELI_LILLY_AND_COMPANY-US201204000344

PATIENT
  Age: 25 Year
  Sex: Female
  Weight: 22.676 kg

DRUGS (2)
  1. CYMBALTA [Suspect]
     Dosage: 60 MG, QD
     Route: 048
     Dates: end: 20120502
  2. TRAZODONE HCL [Concomitant]
     Dosage: 100 MG, UNKNOWN

REACTIONS (6)
  - LIVER FUNCTION TEST ABNORMAL [None]
  - TRICUSPID VALVE INCOMPETENCE [None]
  - MAJOR DEPRESSION [None]
  - HYPONATRAEMIA [None]
  - MITRAL VALVE INCOMPETENCE [None]
  - ANOREXIA NERVOSA [None]
